FAERS Safety Report 9241809 (Version 1)
Quarter: 2013Q2

REPORT INFORMATION
  Report Type: Spontaneous
  Country: US (occurrence: US)
  Receive Date: 20130419
  Receipt Date: 20130419
  Transmission Date: 20140414
  Serious: Yes (Other)
  Sender: FDA-Public Use
  Company Number: US-ELI_LILLY_AND_COMPANY-US201304003807

PATIENT
  Sex: Female

DRUGS (7)
  1. FORTEO [Suspect]
     Indication: OSTEOPOROSIS
     Dosage: UNK, QD
     Dates: start: 201203
  2. ZEMPLAR [Concomitant]
  3. FOLIC ACID [Concomitant]
  4. ESTROGEN [Concomitant]
  5. POTASSIUM [Concomitant]
  6. SODIUM BICARBONATE [Concomitant]
     Dosage: 640 MG, QD
  7. IRON [Concomitant]
     Indication: IRON DEFICIENCY ANAEMIA
     Dosage: UNK
     Route: 042
     Dates: start: 20120416

REACTIONS (1)
  - Renal failure chronic [Unknown]
